FAERS Safety Report 9249494 (Version 3)
Quarter: 2013Q4

REPORT INFORMATION
  Report Type: Spontaneous
  Country: JP (occurrence: JP)
  Receive Date: 20130423
  Receipt Date: 20131211
  Transmission Date: 20140711
  Serious: Yes (Other)
  Sender: FDA-Public Use
  Company Number: JP-GLAXOSMITHKLINE-B0885501A

PATIENT
  Age: 64 Year
  Sex: Male

DRUGS (9)
  1. SERETIDE (50MCG/250MCG) [Suspect]
     Indication: ASTHMA
     Dosage: 250MCG TWICE PER DAY
     Route: 055
     Dates: start: 20130227, end: 20130324
  2. SERETIDE (50MCG/250MCG) [Suspect]
     Indication: ASTHMA
     Dosage: 250MCG TWICE PER DAY
     Route: 055
     Dates: start: 20130402, end: 20130409
  3. SERETIDE (50MCG/100MCG) [Suspect]
     Indication: ASTHMA
     Dosage: 100MCG TWICE PER DAY
     Route: 055
     Dates: start: 20130221, end: 20130226
  4. FLUTIDE ROTADISK 200 [Suspect]
     Indication: ASTHMA
     Dosage: 200MCG TWICE PER DAY
     Route: 055
     Dates: start: 20130325, end: 20130401
  5. ZYLORIC [Concomitant]
     Indication: HYPERURICAEMIA
     Dosage: 100MG TWICE PER DAY
     Route: 048
     Dates: start: 20080819
  6. NORVASC [Concomitant]
     Indication: HYPERTENSION
     Dosage: 2.5MG PER DAY
     Route: 048
     Dates: start: 20090310
  7. PARIET [Concomitant]
     Indication: DYSPEPSIA
     Dosage: 10MG PER DAY
     Route: 048
     Dates: start: 20120531
  8. BIOFERMIN [Concomitant]
     Indication: IRRITABLE BOWEL SYNDROME
     Dosage: 1IUAX THREE TIMES PER DAY
     Route: 048
     Dates: start: 20110205
  9. SINGULAIR [Concomitant]
     Indication: ASTHMA
     Dosage: 10MG PER DAY
     Route: 048
     Dates: start: 20120825

REACTIONS (6)
  - Atrial fibrillation [Not Recovered/Not Resolved]
  - Supraventricular extrasystoles [Not Recovered/Not Resolved]
  - Atrial fibrillation [Unknown]
  - Palpitations [Unknown]
  - Arrhythmia supraventricular [Unknown]
  - Therapeutic response decreased [Unknown]
